FAERS Safety Report 8204208-9 (Version None)
Quarter: 2012Q1

REPORT INFORMATION
  Report Type: 
  Country: None (occurrence: None)
  Receive Date: 20120313
  Receipt Date: 20120302
  Transmission Date: 20120608
  Serious: Yes (Life-Threatening, Hospitalization, Other)
  Sender: FDA-Public Use
  Company Number: CA-NOVOPROD-345789

PATIENT
  Age: 64 Year
  Sex: Female
  Weight: 97 kg

DRUGS (6)
  1. VICTOZA [Suspect]
     Indication: PRODUCT USED FOR UNKNOWN INDICATION
     Dosage: 1.2MG/SC TO 0.6MG/SC
     Route: 058
     Dates: start: 20100920, end: 20120216
  2. ATACAND [Concomitant]
     Dosage: 8 MG, QD
     Dates: start: 20021204
  3. HYDROCHLOROTHIAZIDE [Concomitant]
     Dosage: 25 MG, QD
     Route: 065
     Dates: start: 19871019
  4. METFORMIN HYDROCHLORIDE [Concomitant]
     Dosage: 500 MG, QD
     Dates: start: 20040726
  5. EZETIMIBE [Concomitant]
     Dosage: 10 MG, QD
     Dates: start: 20080109
  6. CRESTOR [Concomitant]
     Dosage: 5 MG, QD
     Dates: start: 20080725

REACTIONS (2)
  - RENAL CANCER METASTATIC [None]
  - ADENOMA BENIGN [None]
